FAERS Safety Report 17484053 (Version 1)
Quarter: 2020Q1

REPORT INFORMATION
  Report Type: Spontaneous
  Country: UM (occurrence: UM)
  Receive Date: 20200219
  Receipt Date: 20200219
  Transmission Date: 20200409
  Serious: Yes (Death, Life-Threatening, Hospitalization)
  Sender: FDA-Public Use
  Company Number: None

PATIENT
  Age: 61 Year
  Sex: Male
  Weight: 102 kg

DRUGS (3)
  1. FECTOROL [Concomitant]
  2. VANCOMYCIN 2000MG (500MG VIALS X 4) [Suspect]
     Active Substance: VANCOMYCIN
     Indication: PYREXIA
     Route: 042
     Dates: start: 20200121
  3. VENOFER [Concomitant]
     Active Substance: IRON SUCROSE

REACTIONS (8)
  - Chills [None]
  - Eye disorder [None]
  - Hyperhidrosis [None]
  - Unresponsive to stimuli [None]
  - Dialysis [None]
  - Blood pressure increased [None]
  - Flushing [None]
  - Dyspnoea [None]

NARRATIVE: CASE EVENT DATE: 20200121
